FAERS Safety Report 14981817 (Version 1)
Quarter: 2018Q2

REPORT INFORMATION
  Report Type: Spontaneous
  Country: IT (occurrence: IT)
  Receive Date: 20180607
  Receipt Date: 20180607
  Transmission Date: 20180711
  Serious: Yes (Disabling, Other)
  Sender: FDA-Public Use
  Company Number: IT-PACIRA PHARMACEUTICALS, INC.-2018CYTIT00027

PATIENT

DRUGS (3)
  1. CYTARABINE. [Suspect]
     Active Substance: CYTARABINE
     Indication: T-CELL TYPE ACUTE LEUKAEMIA
     Dosage: SEE NARRATIVE
     Route: 037
  2. METHOTREXATE. [Suspect]
     Active Substance: METHOTREXATE
     Indication: T-CELL TYPE ACUTE LEUKAEMIA
     Dosage: SEE NARRATIVE
     Route: 037
  3. DEXAMETHASONE. [Concomitant]
     Active Substance: DEXAMETHASONE
     Indication: T-CELL TYPE ACUTE LEUKAEMIA
     Dosage: 4 MG FOR A TOTAL OF EIGHT

REACTIONS (4)
  - Myelopathy [Not Recovered/Not Resolved]
  - Urinary incontinence [Unknown]
  - Blindness [Unknown]
  - Leukoencephalopathy [Not Recovered/Not Resolved]
